FAERS Safety Report 8312664-0 (Version None)
Quarter: 2012Q2

REPORT INFORMATION
  Report Type: 
  Country: None (occurrence: None)
  Receive Date: 20120426
  Receipt Date: 20120416
  Transmission Date: 20120825
  Serious: Yes (Hospitalization, Other)
  Sender: FDA-Public Use
  Company Number: TR-AMGEN-TURSP2012004731

PATIENT
  Age: 69 Year
  Sex: Female

DRUGS (5)
  1. ENBREL [Suspect]
     Indication: RHEUMATOID ARTHRITIS
     Dosage: 25 MG, WEEKLY
     Route: 058
     Dates: start: 20090206
  2. CORTISONE ACETATE [Concomitant]
     Dosage: 4 MG (1 TABLET IN THE MORNING AND HALF TABLET IN THE EVENING)
     Route: 048
     Dates: start: 19830101
  3. ENBREL [Suspect]
     Dosage: 25 MG, WEEKLY
     Route: 058
     Dates: start: 20090208
  4. METHOTREXATE SODIUM [Concomitant]
     Dosage: UNK
     Route: 058
     Dates: start: 20080101
  5. MELOX [Concomitant]
     Dosage: UNK
     Route: 048

REACTIONS (9)
  - INFLUENZA [None]
  - DIZZINESS [None]
  - BLOOD TEST ABNORMAL [None]
  - DYSPNOEA [None]
  - FLATULENCE [None]
  - ABDOMINAL DISCOMFORT [None]
  - COUGH [None]
  - PHARYNGITIS [None]
  - BLOOD COUNT ABNORMAL [None]
